FAERS Safety Report 26062157 (Version 1)
Quarter: 2025Q4

REPORT INFORMATION
  Report Type: Spontaneous
  Country: US (occurrence: US)
  Receive Date: 20251119
  Receipt Date: 20251119
  Transmission Date: 20260118
  Serious: No
  Sender: TOLMAR
  Company Number: US-Tolmar-TLM-2025-08543

PATIENT

DRUGS (5)
  1. ELIGARD [Suspect]
     Active Substance: LEUPROLIDE ACETATE
     Indication: Prostate cancer
     Dosage: GTIN: 00362935461500?SN: 1052736882668?LOT NUMBER: 15197CUS EXP: 6/2026?SYRINGE A LOT NUMBER: 15197A
  2. ELIGARD [Suspect]
     Active Substance: LEUPROLIDE ACETATE
     Dosage: REPLACEMENT DOSE GIVEN
  3. DEVICE [Suspect]
     Active Substance: DEVICE
     Indication: Prostate cancer
     Dosage: GTIN: 00362935461500?SN: 1052736882668?LOT NUMBER: 15197CUS EXP: 6/2026?SYRINGE A LOT NUMBER: 15197A
  4. ELIGARD [Suspect]
     Active Substance: LEUPROLIDE ACETATE
     Indication: Prostate cancer
  5. ELIGARD [Suspect]
     Active Substance: LEUPROLIDE ACETATE
     Dosage: REPLACEMENT DOSE GIVEN

REACTIONS (4)
  - Intercepted product preparation error [Unknown]
  - Device leakage [Unknown]
  - Product preparation error [Unknown]
  - Wrong technique in product usage process [Unknown]
